FAERS Safety Report 5882161-0 (Version None)
Quarter: 2008Q3

REPORT INFORMATION
  Report Type: 
  Country: None (occurrence: None)
  Receive Date: 20080912
  Receipt Date: 20080826
  Transmission Date: 20090109
  Serious: No
  Sender: FDA-Public Use
  Company Number: US-ABBOTT-08P-163-0466020-00

PATIENT
  Sex: Male
  Weight: 80.812 kg

DRUGS (4)
  1. HUMIRA [Suspect]
     Indication: CROHN'S DISEASE
     Dosage: STARTED DOSE
     Route: 058
     Dates: start: 20080401, end: 20080401
  2. HUMIRA [Suspect]
     Route: 058
  3. HUMIRA [Suspect]
     Route: 058
  4. TYLOX [Concomitant]
     Indication: PAIN
     Route: 048
     Dates: start: 20010101

REACTIONS (10)
  - ABDOMINAL PAIN [None]
  - FATIGUE [None]
  - INFLUENZA [None]
  - INSOMNIA [None]
  - PANCREATITIS ACUTE [None]
  - RASH [None]
  - RED BLOOD CELL SEDIMENTATION RATE INCREASED [None]
  - SKIN EXFOLIATION [None]
  - SLUGGISHNESS [None]
  - WEIGHT DECREASED [None]
